FAERS Safety Report 13956333 (Version 2)
Quarter: 2017Q4

REPORT INFORMATION
  Report Type: Spontaneous
  Country: US (occurrence: US)
  Receive Date: 20170911
  Receipt Date: 20171029
  Transmission Date: 20180320
  Serious: No
  Sender: FDA-Public Use
  Company Number: US-BRISTOL-MYERS SQUIBB COMPANY-BMS-2017-081295

PATIENT
  Sex: Female

DRUGS (1)
  1. SPRYCEL [Suspect]
     Active Substance: DASATINIB
     Indication: CHLOROMA
     Dosage: UNK, QD
     Route: 048
     Dates: start: 20131218

REACTIONS (2)
  - Product use in unapproved indication [Unknown]
  - Dyspnoea [Unknown]
